FAERS Safety Report 9719461 (Version 1)
Quarter: 2013Q4

REPORT INFORMATION
  Report Type: Other
  Country: FR (occurrence: FR)
  Receive Date: 20131128
  Receipt Date: 20131128
  Transmission Date: 20140711
  Serious: Yes (Death, Other)
  Sender: FDA-Public Use
  Company Number: FR-ACTELION-A-CH2013-91423

PATIENT
  Age: 32 Year
  Sex: Female

DRUGS (1)
  1. ZAVESCA [Suspect]
     Indication: NIEMANN-PICK DISEASE
     Dosage: 600 MG, OD
     Route: 048

REACTIONS (2)
  - Dysphagia [Fatal]
  - Gastrointestinal disorder [Unknown]
